FAERS Safety Report 21052488 (Version 2)
Quarter: 2022Q3

REPORT INFORMATION
  Report Type: Spontaneous
  Country: US (occurrence: US)
  Receive Date: 20220707
  Receipt Date: 20220831
  Transmission Date: 20221027
  Serious: No
  Sender: FDA-Public Use
  Company Number: US-TORRENT-00011924

PATIENT
  Sex: Female

DRUGS (1)
  1. DAPSONE [Suspect]
     Active Substance: DAPSONE
     Indication: Rosacea
     Dosage: ONCE A DAY IN THE MORNING
     Route: 061

REACTIONS (3)
  - Product quality issue [Unknown]
  - Scratch [Unknown]
  - Product substitution issue [Unknown]
